FAERS Safety Report 9394618 (Version 2)
Quarter: 2013Q3

REPORT INFORMATION
  Report Type: Spontaneous
  Country: PT (occurrence: PT)
  Receive Date: 20130711
  Receipt Date: 20130722
  Transmission Date: 20140515
  Serious: Yes (Death, Hospitalization)
  Sender: FDA-Public Use
  Company Number: PHHY2013PT073456

PATIENT
  Age: 61 Year
  Sex: Female

DRUGS (2)
  1. TASIGNA [Suspect]
     Indication: CHRONIC MYELOID LEUKAEMIA
     Dosage: 200 MG, BID
     Route: 048
     Dates: start: 20101022, end: 201305
  2. ENTECAVIR [Concomitant]
     Indication: CHRONIC HEPATITIS B

REACTIONS (1)
  - Ischaemic stroke [Fatal]
